FAERS Safety Report 19158341 (Version 4)
Quarter: 2025Q4

REPORT INFORMATION
  Report Type: Spontaneous
  Country: EU (occurrence: EU)
  Receive Date: 20210420
  Receipt Date: 20251204
  Transmission Date: 20260118
  Serious: Yes (Death, Other)
  Sender: RANBAXY
  Company Number: EU-SUN PHARMACEUTICAL INDUSTRIES LTD-2021R1-292037

PATIENT
  Age: 43 Year
  Sex: Male

DRUGS (4)
  1. PREGABALIN [Suspect]
     Active Substance: PREGABALIN
     Indication: Product used for unknown indication
     Dosage: UNK
     Route: 065
  2. METHADONE [Suspect]
     Active Substance: METHADONE HYDROCHLORIDE
     Indication: Product used for unknown indication
     Dosage: UNK
     Route: 065
  3. COCAINE [Suspect]
     Active Substance: COCAINE
     Indication: Product used for unknown indication
     Dosage: UNK
     Route: 065
  4. CLONAZEPAM [Suspect]
     Active Substance: CLONAZEPAM
     Indication: Product used for unknown indication
     Dosage: 11 DOSAGE FORM
     Route: 065

REACTIONS (11)
  - Aspiration [Fatal]
  - Asphyxia [Fatal]
  - Intentional product misuse [Fatal]
  - Pulmonary oedema [Fatal]
  - Respiratory depression [Fatal]
  - Substance abuse [Fatal]
  - Visceral congestion [Fatal]
  - Poisoning [Fatal]
  - Drug dependence [Unknown]
  - Drug abuse [Not Recovered/Not Resolved]
  - Drug level above therapeutic [Unknown]
